FAERS Safety Report 15079848 (Version 1)
Quarter: 2018Q2

REPORT INFORMATION
  Report Type: Spontaneous
  Country: CA (occurrence: CA)
  Receive Date: 20180627
  Receipt Date: 20180627
  Transmission Date: 20180711
  Serious: Yes (Other)
  Sender: FDA-Public Use
  Company Number: CA-TERSERA THERAPEUTICS, LLC-2050087

PATIENT
  Sex: Female

DRUGS (3)
  1. ZOLADEX [Suspect]
     Active Substance: GOSERELIN ACETATE
     Indication: METASTATIC NEOPLASM
     Route: 058
     Dates: start: 201511, end: 201703
  2. LETROZOLE. [Suspect]
     Active Substance: LETROZOLE
     Route: 065
     Dates: start: 201511, end: 201703
  3. IBRANCE [Concomitant]
     Active Substance: PALBOCICLIB
     Route: 065

REACTIONS (1)
  - Malignant neoplasm progression [Unknown]
